FAERS Safety Report 5081408-0 (Version None)
Quarter: 2006Q3

REPORT INFORMATION
  Report Type: 
  Country: None (occurrence: None)
  Receive Date: 20060811
  Receipt Date: 20060726
  Transmission Date: 20061208
  Serious: Yes (Hospitalization)
  Sender: FDA-Public Use
  Company Number: 2006001511

PATIENT
  Age: 91 Year
  Sex: Female

DRUGS (2)
  1. TARCEVA [Suspect]
     Indication: LUNG NEOPLASM MALIGNANT
     Dosage: 150 MG (QD), ORAL; SEE IMAGE
     Route: 048
     Dates: start: 20051018, end: 20051201
  2. TARCEVA [Suspect]
     Indication: LUNG NEOPLASM MALIGNANT
     Dosage: 150 MG (QD), ORAL; SEE IMAGE
     Route: 048
     Dates: start: 20051201, end: 20060601

REACTIONS (3)
  - DIARRHOEA [None]
  - FAECALOMA [None]
  - WEIGHT DECREASED [None]
